FAERS Safety Report 8814593 (Version 2)
Quarter: 2012Q4

REPORT INFORMATION
  Report Type: 
  Country: FR (occurrence: FR)
  Receive Date: 20120928
  Receipt Date: 20121221
  Transmission Date: 20130627
  Serious: Yes (Other)
  Sender: FDA-Public Use
  Company Number: PHHY2012FR083975

PATIENT
  Age: 87 Year
  Sex: Female

DRUGS (4)
  1. GLIVEC [Suspect]
     Indication: CHRONIC MYELOID LEUKAEMIA
     Dosage: 400 mg, Daily
     Route: 048
     Dates: start: 2004, end: 20100219
  2. GLIVEC [Suspect]
     Dosage: 300 mg,QD
     Route: 048
     Dates: start: 20100219, end: 20120808
  3. NOVONORM [Concomitant]
  4. CREON [Concomitant]

REACTIONS (3)
  - Blister [Recovered/Resolved]
  - Scar [Unknown]
  - Oedema peripheral [Unknown]
